FAERS Safety Report 20308405 (Version 2)
Quarter: 2022Q1

REPORT INFORMATION
  Report Type: Spontaneous
  Country: NL (occurrence: NL)
  Receive Date: 20220107
  Receipt Date: 20220112
  Transmission Date: 20220424
  Serious: Yes (Other)
  Sender: FDA-Public Use
  Company Number: None

PATIENT
  Age: 41 Year
  Sex: Female
  Weight: 63 kg

DRUGS (2)
  1. BISOPROLOL [Suspect]
     Active Substance: BISOPROLOL
     Indication: Postural orthostatic tachycardia syndrome
     Dosage: 1 TO 2 X DAILY 1 PIECE,BISOPROLOL TABLET 1,25MG / BRAND NAME NOT SPECIFIED,THERAPY END DATE:ASKU,UNI
     Route: 065
     Dates: start: 20211206
  2. ACENOCOUMAROL [Concomitant]
     Active Substance: ACENOCOUMAROL
     Dosage: 1 MG (MILLIGRAM),ACENOCOUMAROL TABLET 1MG / BRAND NAME NOT SPECIFIED,THERAPY START DATE :THERAPY END

REACTIONS (6)
  - Atrial fibrillation [Not Recovered/Not Resolved]
  - Ventricular extrasystoles [Not Recovered/Not Resolved]
  - Sleep paralysis [Recovered/Resolved]
  - Supraventricular tachycardia [Not Recovered/Not Resolved]
  - Hypoaesthesia [Recovering/Resolving]
  - Tinnitus [Recovering/Resolving]

NARRATIVE: CASE EVENT DATE: 20211208
